FAERS Safety Report 6079123-X (Version None)
Quarter: 2009Q1

REPORT INFORMATION
  Report Type: 
  Country: None (occurrence: None)
  Receive Date: 20090216
  Receipt Date: 20090206
  Transmission Date: 20090719
  Serious: Yes (Hospitalization)
  Sender: FDA-Public Use
  Company Number: A0745479A

PATIENT
  Age: 62 Year
  Sex: Male
  Weight: 101.8 kg

DRUGS (3)
  1. AVANDIA [Suspect]
     Dosage: 8MG PER DAY
     Route: 048
     Dates: start: 20050223, end: 20070506
  2. METFORMIN HCL [Concomitant]
     Dates: start: 20020101
  3. AMARYL [Concomitant]
     Dates: start: 20010101, end: 20070101

REACTIONS (6)
  - ARTERIOSCLEROSIS [None]
  - ATRIAL FIBRILLATION [None]
  - CARDIAC FAILURE CONGESTIVE [None]
  - CORONARY ARTERY DISEASE [None]
  - HEART INJURY [None]
  - MYOCARDIAL INFARCTION [None]
